FAERS Safety Report 9252016 (Version 1)
Quarter: 2013Q2

REPORT INFORMATION
  Report Type: Spontaneous
  Country: NL (occurrence: NL)
  Receive Date: 20130424
  Receipt Date: 20130424
  Transmission Date: 20140414
  Serious: Yes (Other)
  Sender: FDA-Public Use
  Company Number: PHHY2013NL039781

PATIENT
  Sex: Male

DRUGS (2)
  1. VERAPAMIL HCL RETARD [Suspect]
     Dosage: 1 DF, QD
     Route: 048
  2. VERAPAMIL [Concomitant]
     Dosage: 40 MG, UNK

REACTIONS (3)
  - Asthma [Unknown]
  - Erythema [Unknown]
  - Eye pruritus [Unknown]
